FAERS Safety Report 7072313-9 (Version None)
Quarter: 2010Q4

REPORT INFORMATION
  Report Type: 
  Country: None (occurrence: None)
  Receive Date: 20101029
  Receipt Date: 20100401
  Transmission Date: 20110411
  Serious: No
  Sender: FDA-Public Use
  Company Number: A0838181A

PATIENT
  Age: 65 Year
  Sex: Female

DRUGS (5)
  1. ADVAIR DISKUS 100/50 [Suspect]
     Indication: PRODUCT USED FOR UNKNOWN INDICATION
     Route: 055
     Dates: start: 20090701
  2. SPIRIVA [Concomitant]
  3. NAPROSYN [Concomitant]
  4. VALIUM [Concomitant]
  5. VICODIN [Concomitant]

REACTIONS (2)
  - CHOKING SENSATION [None]
  - PRODUCT QUALITY ISSUE [None]
